FAERS Safety Report 24270059 (Version 1)
Quarter: 2024Q3

REPORT INFORMATION
  Report Type: Spontaneous
  Country: US (occurrence: US)
  Receive Date: 20240830
  Receipt Date: 20240830
  Transmission Date: 20241016
  Serious: No
  Sender: EISAI
  Company Number: US-Eisai-EC-2024-171728

PATIENT
  Sex: Female

DRUGS (1)
  1. LENVIMA [Suspect]
     Active Substance: LENVATINIB
     Indication: Product used for unknown indication
     Route: 048
     Dates: start: 202407

REACTIONS (5)
  - Oral pain [Unknown]
  - Decreased appetite [Unknown]
  - Tongue discomfort [Unknown]
  - Stomatitis [Unknown]
  - Dry throat [Unknown]

NARRATIVE: CASE EVENT DATE: 20240101
